FAERS Safety Report 13846592 (Version 1)
Quarter: 2017Q3

REPORT INFORMATION
  Report Type: Report from Study
  Country: US (occurrence: US)
  Receive Date: 20170808
  Receipt Date: 20170808
  Transmission Date: 20171127
  Serious: Yes (Death, Hospitalization)
  Sender: FDA-Public Use
  Company Number: PHHO2017US011481

PATIENT
  Sex: Female
  Weight: 72.9 kg

DRUGS (4)
  1. TRAMETINIB [Suspect]
     Active Substance: TRAMETINIB
     Dosage: 2 MG, QD
     Route: 048
     Dates: start: 20170314
  2. GSK2118436 [Suspect]
     Active Substance: DABRAFENIB
     Indication: ADENOCARCINOMA GASTRIC
     Dosage: 150 MG, BID
     Route: 048
     Dates: start: 20170308
  3. GSK2118436 [Suspect]
     Active Substance: DABRAFENIB
     Dosage: 150 MG, BID
     Route: 048
     Dates: start: 20170314
  4. TRAMETINIB [Suspect]
     Active Substance: TRAMETINIB
     Indication: ADENOCARCINOMA GASTRIC
     Dosage: 2 MG, QD
     Route: 048
     Dates: start: 20170308

REACTIONS (6)
  - Metastatic neoplasm [Fatal]
  - Pulmonary embolism [Unknown]
  - Muscular weakness [Recovered/Resolved]
  - Hyponatraemia [Unknown]
  - Dehydration [Recovered/Resolved]
  - Fatigue [Recovered/Resolved]

NARRATIVE: CASE EVENT DATE: 20170313
